FAERS Safety Report 12269425 (Version 2)
Quarter: 2016Q2

REPORT INFORMATION
  Report Type: Report from Study
  Country: CN (occurrence: CN)
  Receive Date: 20160414
  Receipt Date: 20160429
  Transmission Date: 20160815
  Serious: Yes (Hospitalization)
  Sender: FDA-Public Use
  Company Number: PHHY2016CN048740

PATIENT
  Age: 70 Year
  Sex: Female
  Weight: 57 kg

DRUGS (1)
  1. EXFORGE [Suspect]
     Active Substance: AMLODIPINE BESYLATE\VALSARTAN
     Indication: HYPERTENSION
     Dosage: 1 DF (AMLODIPINE 5 MG AND VALSARTAN 80 MG), QD
     Route: 048
     Dates: start: 201203, end: 20150320

REACTIONS (4)
  - Cardiomyopathy [Recovering/Resolving]
  - Arteriosclerosis coronary artery [Recovering/Resolving]
  - Choking sensation [Unknown]
  - Asphyxia [Unknown]

NARRATIVE: CASE EVENT DATE: 20130929
